FAERS Safety Report 21269085 (Version 3)
Quarter: 2022Q4

REPORT INFORMATION
  Report Type: Spontaneous
  Country: DE (occurrence: DE)
  Receive Date: 20220830
  Receipt Date: 20221216
  Transmission Date: 20230113
  Serious: Yes (Other)
  Sender: FDA-Public Use
  Company Number: DE-BRISTOL-MYERS SQUIBB COMPANY-2022-087478

PATIENT
  Age: 56 Year
  Sex: Male
  Weight: 75 kg

DRUGS (3)
  1. ORENCIA [Suspect]
     Active Substance: ABATACEPT
     Indication: Rheumatoid arthritis
     Route: 058
     Dates: start: 20220303
  2. METHOTREXATE [Suspect]
     Active Substance: METHOTREXATE
     Indication: Rheumatoid arthritis
     Route: 048
  3. FOLIC ACID [Suspect]
     Active Substance: FOLIC ACID
     Indication: Rheumatoid arthritis
     Dosage: FREQ: ONCE PER WEEK/ONE DAY AFTER MTX

REACTIONS (7)
  - Migraine [Recovered/Resolved]
  - Erythrosis [Recovered/Resolved]
  - Panic attack [Recovered/Resolved]
  - Product storage error [Unknown]
  - Erythema [Recovered/Resolved]
  - Dyspnoea [Unknown]
  - Telangiectasia [Unknown]

NARRATIVE: CASE EVENT DATE: 20220807
